FAERS Safety Report 7197193-2 (Version None)
Quarter: 2010Q4

REPORT INFORMATION
  Report Type: 
  Country: None (occurrence: None)
  Receive Date: 20101224
  Receipt Date: 20101004
  Transmission Date: 20110411
  Serious: No
  Sender: FDA-Public Use
  Company Number: US-BAYER-201022264BCC

PATIENT
  Sex: Female
  Weight: 49.887 kg

DRUGS (12)
  1. MIDOL EXTENDED RELIEF CAPLETS [Suspect]
     Indication: DYSMENORRHOEA
     Dosage: UNK
     Dates: start: 20100701
  2. MIDOL EXTENDED RELIEF CAPLETS [Suspect]
     Indication: BACK PAIN
  3. MIDOL EXTENDED RELIEF CAPLETS [Suspect]
     Indication: HEADACHE
  4. MIDOL PM [Suspect]
     Indication: DYSMENORRHOEA
     Dosage: UNK
     Dates: start: 20100701
  5. MIDOL PM [Suspect]
     Indication: BACK PAIN
  6. MIDOL PM [Suspect]
     Indication: HEADACHE
  7. MIDOL MENSTRUAL COMPLETE FORMULA [Suspect]
     Indication: DYSMENORRHOEA
  8. FLONASE [Concomitant]
  9. ASTELIN [Concomitant]
  10. TOPAMAX [Concomitant]
  11. NEXIUM [Concomitant]
  12. MOTRIN [Concomitant]
     Dosage: UNK

REACTIONS (5)
  - BACK PAIN [None]
  - DYSMENORRHOEA [None]
  - HEADACHE [None]
  - INSOMNIA [None]
  - MIDDLE INSOMNIA [None]
